FAERS Safety Report 4274584-0 (Version None)
Quarter: 2004Q1

REPORT INFORMATION
  Report Type: 
  Country: None (occurrence: None)
  Receive Date: 20040115
  Receipt Date: 20030925
  Transmission Date: 20041129
  Serious: Yes (Death, Hospitalization)
  Sender: FDA-Public Use
  Company Number: 001-#1#2003-00191

PATIENT
  Age: 80 Year
  Sex: Female

DRUGS (8)
  1. PROSTAVASIN-20 UG (ALPROSTADIL) [Suspect]
     Indication: PERIPHERAL VASCULAR DISORDER
     Dosage: IN 250 ML TRAEGERLOESUNG NACL 0.5%
     Route: 041
     Dates: start: 20030814, end: 20030903
  2. SPIRONLACTONE (FUROSEMIDE) [Concomitant]
  3. AMIODARONE HCL [Concomitant]
  4. METOPROLOL SUCCINATE [Concomitant]
  5. LEVOTHYROXINE SODIUM [Concomitant]
  6. ATORVASTATIN [Concomitant]
  7. RAMIPRIL [Concomitant]
  8. PANTOPRAZOLE SODIUM [Concomitant]

REACTIONS (1)
  - HEPATIC FAILURE [None]
